FAERS Safety Report 18261714 (Version 1)
Quarter: 2020Q3

REPORT INFORMATION
  Report Type: Spontaneous
  Country: CA (occurrence: CA)
  Receive Date: 20200914
  Receipt Date: 20200914
  Transmission Date: 20201103
  Serious: Yes (Hospitalization)
  Sender: FDA-Public Use
  Company Number: CA-ACCORD-200423

PATIENT
  Age: 93 Year
  Sex: Male

DRUGS (1)
  1. METHOTREXATE. [Suspect]
     Active Substance: METHOTREXATE
     Indication: DERMATITIS
     Dosage: 1 EVERY 1 WEEKS
     Route: 048

REACTIONS (3)
  - Biliary dilatation [Unknown]
  - Pancreatic duct dilatation [Unknown]
  - Liver function test increased [Unknown]
